FAERS Safety Report 21472839 (Version 2)
Quarter: 2022Q4

REPORT INFORMATION
  Report Type: Spontaneous
  Country: US (occurrence: US)
  Receive Date: 20221018
  Receipt Date: 20221024
  Transmission Date: 20230112
  Serious: Yes (Other)
  Sender: FDA-Public Use
  Company Number: US-PFIZER INC-PV202200083087

PATIENT
  Age: 37 Year

DRUGS (1)
  1. METHOTREXATE SODIUM [Suspect]
     Active Substance: METHOTREXATE SODIUM
     Indication: Systemic lupus erythematosus
     Dosage: UNK

REACTIONS (5)
  - Osteomyelitis [Unknown]
  - Tooth disorder [Unknown]
  - Pain in jaw [Unknown]
  - Jaw disorder [Not Recovered/Not Resolved]
  - Off label use [Unknown]
